FAERS Safety Report 21271665 (Version 2)
Quarter: 2023Q2

REPORT INFORMATION
  Report Type: Report from Study
  Country: CA (occurrence: CA)
  Receive Date: 20220830
  Receipt Date: 20230426
  Transmission Date: 20230721
  Serious: Yes (Other)
  Sender: FDA-Public Use
  Company Number: CA-JNJFOC-20220827791

PATIENT
  Age: 26 Year
  Sex: Male

DRUGS (2)
  1. REMICADE [Suspect]
     Active Substance: INFLIXIMAB
     Indication: Ankylosing spondylitis
     Route: 042
     Dates: start: 20120326
  2. REMICADE [Suspect]
     Active Substance: INFLIXIMAB
     Indication: Crohn^s disease

REACTIONS (3)
  - COVID-19 [Recovered/Resolved]
  - Dehydration [Recovered/Resolved]
  - Off label use [Unknown]

NARRATIVE: CASE EVENT DATE: 20120326
